FAERS Safety Report 14193621 (Version 2)
Quarter: 2018Q1

REPORT INFORMATION
  Report Type: Spontaneous
  Country: US (occurrence: US)
  Receive Date: 20171115
  Receipt Date: 20180221
  Transmission Date: 20180508
  Serious: No
  Sender: FDA-Public Use
  Company Number: US-TAKEDA-2017MPI009949

PATIENT
  Sex: Female
  Weight: 89.8 kg

DRUGS (1)
  1. NINLARO [Suspect]
     Active Substance: IXAZOMIB CITRATE
     Indication: PLASMA CELL MYELOMA
     Dosage: 4 MG, UNK
     Route: 048
     Dates: start: 20170204, end: 201802

REACTIONS (2)
  - Nasopharyngitis [Unknown]
  - Fatigue [Unknown]
